FAERS Safety Report 9910878 (Version 1)
Quarter: 2014Q1

REPORT INFORMATION
  Report Type: Spontaneous
  Country: US (occurrence: US)
  Receive Date: 20140219
  Receipt Date: 20140219
  Transmission Date: 20141002
  Serious: Yes (Hospitalization)
  Sender: FDA-Public Use
  Company Number: US-BRISTOL-MYERS SQUIBB COMPANY-20155495

PATIENT
  Age: 2 Year
  Sex: Female

DRUGS (1)
  1. ABILIFY TABS 15 MG [Suspect]

REACTIONS (6)
  - Accidental exposure to product by child [Unknown]
  - Somnolence [Unknown]
  - Lethargy [Unknown]
  - Abdominal discomfort [Unknown]
  - Vomiting [Unknown]
  - Drug screen false positive [Unknown]
